FAERS Safety Report 10855951 (Version 1)
Quarter: 2015Q1

REPORT INFORMATION
  Report Type: Spontaneous
  Country: US (occurrence: US)
  Receive Date: 20150222
  Receipt Date: 20150222
  Transmission Date: 20150721
  Serious: No
  Sender: FDA-Public Use
  Company Number: US-ALLERGAN-1419082US

PATIENT
  Sex: Female

DRUGS (20)
  1. LIVALO [Concomitant]
     Active Substance: PITAVASTATIN CALCIUM
     Dosage: 2 MG, QHS
  2. MIRALAX [Concomitant]
     Active Substance: POLYETHYLENE GLYCOL 3350
     Dosage: 17 G,ONCE DAILY PRN
  3. LEVOTHYROXINE [Concomitant]
     Active Substance: LEVOTHYROXINE
     Dosage: 50 MCG, UNK
  4. METFORMIN [Concomitant]
     Active Substance: METFORMIN HYDROCHLORIDE
     Dosage: 1000 MG, BID
  5. CYCLOBENZAPRINE [Concomitant]
     Active Substance: CYCLOBENZAPRINE
     Indication: MIGRAINE
     Dosage: 10 MG, TID
  6. SUMAVEL DOSEPRO [Concomitant]
     Active Substance: SUMATRIPTAN SUCCINATE
     Indication: MIGRAINE
     Dosage: 6MG/0.5ML, AT ONSET OF MIGRAINE
  7. METAMUCIL [Concomitant]
     Active Substance: PLANTAGO SEED
     Dosage: 1 LEVEL T. MIXED WITH 24 OZ GLASS OF LIQUID, ONCE DAILY AS NEEDED
  8. NASONEX [Concomitant]
     Active Substance: MOMETASONE FUROATE
     Dosage: 2 SPRAYS IN EACH NOSTRIL, QD
     Route: 045
  9. CYMBALTA [Concomitant]
     Active Substance: DULOXETINE HYDROCHLORIDE
     Dosage: 30 MG, QHS
  10. ZOLPIDEM [Concomitant]
     Active Substance: ZOLPIDEM\ZOLPIDEM TARTRATE
     Dosage: 5 MG, QHS
  11. VITAMIN B12 [Concomitant]
     Active Substance: CYANOCOBALAMIN
     Dosage: 1000 MCG, QD
  12. DIHYDROERGOTAMINE [Concomitant]
     Active Substance: DIHYDROERGOTAMINE
     Indication: MIGRAINE
     Dosage: 1 MG/ML INJECTION, TID
  13. ONDANSETRON [Concomitant]
     Active Substance: ONDANSETRON
     Indication: MIGRAINE
     Dosage: 8 MG, UNK
  14. BOTOX [Suspect]
     Active Substance: ONABOTULINUMTOXINA
     Indication: MIGRAINE
     Dosage: 200 UNITS, SINGLE
     Dates: start: 201303
  15. SPIRONOLACTONE. [Concomitant]
     Active Substance: SPIRONOLACTONE
     Dosage: 25 MG (1 OR 2 TABLETS), BID
  16. VERAPAMIL [Concomitant]
     Active Substance: VERAPAMIL HYDROCHLORIDE
     Dosage: 240 MG, QD
  17. PATANASE [Concomitant]
     Active Substance: OLOPATADINE HYDROCHLORIDE
     Dosage: 0.6 %, 2 SPRAYS IN EACH NOSTRIL 4 TIMES DAILY
     Route: 045
  18. NADOLOL. [Concomitant]
     Active Substance: NADOLOL
     Dosage: 80 MG, BID
  19. PROMETHAZINE [Concomitant]
     Active Substance: PROMETHAZINE\PROMETHAZINE HYDROCHLORIDE
     Dosage: 25 MG, Q 6-8 HOURS AS NEEDED
  20. TREXIMET [Concomitant]
     Active Substance: NAPROXEN SODIUM\SUMATRIPTAN SUCCINATE
     Indication: MIGRAINE
     Dosage: 85-500MG AT ONSET OF MIGRAINE

REACTIONS (4)
  - Skin atrophy [Not Recovered/Not Resolved]
  - Headache [Not Recovered/Not Resolved]
  - Off label use [Unknown]
  - Scab [Not Recovered/Not Resolved]

NARRATIVE: CASE EVENT DATE: 201401
